FAERS Safety Report 9490384 (Version 1)
Quarter: 2013Q3

REPORT INFORMATION
  Report Type: Spontaneous
  Country: CG (occurrence: CG)
  Receive Date: 20130830
  Receipt Date: 20130830
  Transmission Date: 20140515
  Serious: Yes (Hospitalization, Other)
  Sender: FDA-Public Use
  Company Number: CG-009507513-1308COG011240

PATIENT
  Age: 43 Year
  Sex: Female

DRUGS (1)
  1. IVERMECTIN [Suspect]
     Indication: FILARIASIS
     Dosage: 3 TABLETS, ONCE
     Route: 048
     Dates: start: 20120819, end: 20120819

REACTIONS (4)
  - Encephalopathy [Recovered/Resolved]
  - Coma [Recovered/Resolved]
  - Pyrexia [Recovered/Resolved]
  - Headache [Recovered/Resolved]
